FAERS Safety Report 6433162-5 (Version None)
Quarter: 2009Q4

REPORT INFORMATION
  Report Type: 
  Country: None (occurrence: None)
  Receive Date: 20091109
  Receipt Date: 20091026
  Transmission Date: 20100525
  Serious: Yes (Other)
  Sender: FDA-Public Use
  Company Number: PHEH2009US05740

PATIENT
  Sex: Female
  Weight: 83.9 kg

DRUGS (10)
  1. EXFORGE HCT [Suspect]
     Indication: HYPERTENSION
     Dosage: 320//10/25 MG DAILY
     Route: 048
     Dates: start: 20090601
  2. EXFORGE [Suspect]
     Dosage: UNK
  3. HYDROCHLOROTHIAZIDE [Suspect]
     Dosage: 2.5 MG, UNK
     Dates: start: 20090701
  4. ANTIHYPERTENSIVES [Concomitant]
     Indication: BLOOD PRESSURE
     Dosage: UNK, UNK
  5. TOPROL-XL [Concomitant]
     Indication: HYPERTENSION
     Dosage: 100 MG, BID
     Route: 048
     Dates: start: 19990101, end: 20091001
  6. COUMADIN [Concomitant]
  7. VITAMINS [Concomitant]
  8. SINGULAIR [Concomitant]
     Indication: MULTIPLE ALLERGIES
     Dosage: 10 MG, QD
     Route: 048
     Dates: start: 20060101, end: 20091001
  9. OMEPRAZOLE [Concomitant]
     Indication: GASTROOESOPHAGEAL REFLUX DISEASE
     Dosage: 10 MG, QD
     Route: 048
     Dates: start: 20090401, end: 20091001
  10. CLONIDINE [Concomitant]
     Indication: HYPERTENSION
     Dosage: 0.1 MG, BID
     Route: 048
     Dates: start: 20090601, end: 20091001

REACTIONS (4)
  - BLOOD PRESSURE INCREASED [None]
  - OEDEMA [None]
  - OEDEMA PERIPHERAL [None]
  - SENSORY DISTURBANCE [None]
